FAERS Safety Report 8145226-9 (Version None)
Quarter: 2012Q1

REPORT INFORMATION
  Report Type: 
  Country: None (occurrence: None)
  Receive Date: 20120217
  Receipt Date: 20120213
  Transmission Date: 20120608
  Serious: Yes (Death, Other)
  Sender: FDA-Public Use
  Company Number: BE-PFIZER INC-2012039555

PATIENT
  Sex: Male

DRUGS (2)
  1. GEMCITABINE HYDROCHLORIDE [Suspect]
     Indication: NEOPLASM MALIGNANT
     Dosage: 1000 MG/M2 ON DAYS 1, 8 AND 15 OF A FOUR-WEEK CYCLE
     Route: 042
  2. ENOXAPARIN SODIUM [Suspect]
     Indication: CORONARY ARTERY DISEASE

REACTIONS (11)
  - MULTI-ORGAN FAILURE [None]
  - RENAL FAILURE [None]
  - VENOOCCLUSIVE LIVER DISEASE [None]
  - PANCREAS LIPOMATOSIS [None]
  - CHOLESTASIS [None]
  - HEPATIC NECROSIS [None]
  - TOXICITY TO VARIOUS AGENTS [None]
  - HEPATIC FAILURE [None]
  - COAGULOPATHY [None]
  - LEUKOPENIA [None]
  - CHOLELITHIASIS [None]
